FAERS Safety Report 25451812 (Version 1)
Quarter: 2025Q2

REPORT INFORMATION
  Report Type: Report from Study
  Country: US (occurrence: US)
  Receive Date: 20250618
  Receipt Date: 20250618
  Transmission Date: 20250717
  Serious: Yes (Other)
  Sender: CHIESI
  Company Number: US-CHIESI-2025CHF01167

PATIENT
  Age: 1 Year
  Sex: Female
  Weight: 8.61 kg

DRUGS (2)
  1. BIRCH BARK\HERBALS [Suspect]
     Active Substance: BIRCH BARK\HERBALS
     Indication: Epidermolysis bullosa
     Route: 061
     Dates: start: 20240822
  2. BIRCH BARK\HERBALS [Suspect]
     Active Substance: BIRCH BARK\HERBALS

REACTIONS (10)
  - Pseudomonas infection [Recovering/Resolving]
  - Wound [Recovering/Resolving]
  - Wound dehiscence [Recovering/Resolving]
  - Impaired healing [Not Recovered/Not Resolved]
  - Wound secretion [Recovering/Resolving]
  - Wound complication [Not Recovered/Not Resolved]
  - Wound complication [Recovering/Resolving]
  - Fungal infection [Recovering/Resolving]
  - Drug ineffective [Not Recovered/Not Resolved]
  - Product quality issue [Recovered/Resolved]

NARRATIVE: CASE EVENT DATE: 20250301
